FAERS Safety Report 10262391 (Version 1)
Quarter: 2014Q2

REPORT INFORMATION
  Report Type: Spontaneous
  Country: NL (occurrence: NL)
  Receive Date: 20140626
  Receipt Date: 20140626
  Transmission Date: 20141212
  Serious: Yes (Hospitalization)
  Sender: FDA-Public Use
  Company Number: NL-TEVA-490273ISR

PATIENT
  Age: 59 Year
  Sex: Female
  Weight: 60 kg

DRUGS (12)
  1. METFORMINE TABLET 1000MG [Suspect]
     Indication: TYPE 2 DIABETES MELLITUS
     Dosage: 2000 MILLIGRAM DAILY; TWICE DAILY ONE PIECE
     Route: 048
     Dates: start: 200911, end: 20140529
  2. TEMAZEPAM MYLAN CAPSULE 20MG [Concomitant]
     Dosage: 20 MILLIGRAM DAILY; CHRONIC USE, ONCE DAILY ONE
     Route: 048
  3. GABAPENTINE SANDOZ CAPSULE 400MG [Concomitant]
     Dosage: 1200 MILLIGRAM DAILY; CHRONIC USE 3 TIMES DAILY ONE
     Route: 048
  4. PREDNISOLON CF TABLET 5MG [Concomitant]
     Dosage: 5 MILLIGRAM DAILY; CHRONIC USE, TWICE DAILY 2.5 MG
     Route: 048
  5. INSULATARD PENFILL INJ 100IE/ML PATR 3ML [Concomitant]
     Dosage: USE KNOWN, CHRONIC USE
     Route: 058
  6. NIFEDIPINE TEVA RETARD TABLET 10MG [Concomitant]
     Dosage: 20 MILLIGRAM DAILY; CHRONIC USE, TWICE DAILY ONE
     Route: 048
  7. NOVORAPID FLEXPEN INJVLST 100E/ML WWSP 3ML [Concomitant]
     Dosage: CHRONIC USE, USE KNOWN
     Route: 058
  8. OXAZEPAM SANDOZ TABLET 10MG [Concomitant]
     Dosage: 30 MILLIGRAM DAILY; CHRONIC USE AS REQUIRED 3 TIMES DAILY ONE
     Route: 048
  9. ESOMEPRAZOL SANDOZ CAPSULE MSR 20MG [Concomitant]
     Dosage: 40 MILLIGRAM DAILY; CHRONIC USE, TWICE DAILY ONE. GASTRO-RESISTANT CAPSULE
     Route: 048
  10. TRAMADOL HCL SANDOZ RETARD TABLET MGA 100MG [Concomitant]
     Dosage: 200 MILLIGRAM DAILY; CHRONIC USE, TWICE DAILY ONE
     Route: 048
  11. CALCI CHEW D3 KAUWTABLET  500MG/400IE [Concomitant]
     Dosage: 1 DOSAGE FORMS DAILY; CHRONIC USE, ONCE DAILY ONE
     Route: 048
  12. FLUCONAZOL SANDOZ CAPSULE  50MG [Concomitant]
     Dosage: 100 MILLIGRAM DAILY; CHRONIC USE, TWICE DAILY ONE
     Route: 048

REACTIONS (3)
  - Neuritis [Recovered/Resolved]
  - Arthralgia [Recovered/Resolved]
  - Myalgia [Recovered/Resolved]
